FAERS Safety Report 5779773-1 (Version None)
Quarter: 2008Q2

REPORT INFORMATION
  Report Type: 
  Country: None (occurrence: None)
  Receive Date: 20080618
  Receipt Date: 20080520
  Transmission Date: 20081010
  Serious: Yes (Death, Hospitalization)
  Sender: FDA-Public Use
  Company Number: 000#5#2005-00395

PATIENT
  Age: 64 Year
  Sex: Male

DRUGS (55)
  1. ROTIGOTINE (DOSE UNKNOWN), PATCH (SILICONE) (ROTIGOTINE) [Suspect]
     Indication: PARKINSON'S DISEASE
     Dosage: TRANSDERMAL
     Route: 062
     Dates: start: 20050401, end: 20071015
  2. ROFECOXIB [Concomitant]
  3. FLOXACILLIN SODIUM [Concomitant]
  4. OMEPRAZOLE [Concomitant]
  5. CODEINE PHOSPHATE (CODEINE PHOSPHATE) [Concomitant]
  6. DICLOFENAC SODIUM [Concomitant]
  7. ENALAPRIL MALEATE [Concomitant]
  8. ERYTHROMYCIN [Concomitant]
  9. AMOXICILLIN, TRIHYDRATE, CLAVULANATE, POTASSIUM (AMOXICILLIN TRIHYDRAT [Concomitant]
  10. FUROSEMIDE [Concomitant]
  11. DEXTROMETHORPHAN, DOXYLAMINE, SODIUM CITRATE, CETYLPYRIDINIUM CHLORIDE [Concomitant]
  12. ACETAMINOPHEN [Concomitant]
  13. PARACETAMOL CODEINE PHOSPHATE [Concomitant]
  14. SALBUTAMOL (SALBUTAMOL) [Concomitant]
  15. FLUTICASONE PROPIONATE [Concomitant]
  16. PREDNISONE TAB [Concomitant]
  17. LEVODOPA-CARBIDOPA (CARBIDOPA, LEVODOPA) [Concomitant]
  18. IPRATROPIUM, SALBUTAMOL (IPRATROPIUM, SALBUTAMOL) [Concomitant]
  19. ZOPICLONE (ZOPICLONE) [Concomitant]
  20. FORMOTEROL (FORMOTEROL) [Concomitant]
  21. MORPHINE SULFATE [Concomitant]
  22. DICLOFENAC SODIUM [Concomitant]
  23. ENALAPRIL MALEATE [Concomitant]
  24. CALCIUM CARBONATE (CALCIUM CARBONATE) [Concomitant]
  25. ALENDRONATE SODIUM [Concomitant]
  26. DOCUSATE SODIUM (DOCUSATE SODIUM) [Concomitant]
  27. TENOXICAM (TENOXICAM) [Concomitant]
  28. ROXITHROMYCIN (ROXITHROMYCIN) [Concomitant]
  29. CALCIUM CARBONATE, MAGNESIUM CARBONATE (CALCIUM CARBONATE, MAGNESIUM C [Concomitant]
  30. CHLORPHENIRAMIEN MALEATE, PHOLCODINE, PSEUDOEPHEDRINE HYDROCHLORIDE (C [Concomitant]
  31. OXYGEN (OXYGEN) [Concomitant]
  32. SALBUTAMOL SULFATE (SALBUTAMOL SULFATE) [Concomitant]
  33. IPRATROPIUM BROMIDE [Concomitant]
  34. TIOTROPIUME [Concomitant]
  35. BUDESONIDE, FORMOTEROL (BUDESONIDE) [Concomitant]
  36. LACTULOSE [Concomitant]
  37. LORAZEPAM [Concomitant]
  38. OXYBUPROCAINE [Concomitant]
  39. CEFAZOLIN [Concomitant]
  40. IRRIGATING SOLUTIONS / ADRENALIN [Concomitant]
  41. CYCLOPENTOLATE HYDROCHLORIDE [Concomitant]
  42. PHENYLEPHRINE (PHENYLEPHRINE) [Concomitant]
  43. MIDAZOLAM HCL [Concomitant]
  44. BUPIVACAINE [Concomitant]
  45. ROXITHROMYCIN (ROXITHROMYCIN) [Concomitant]
  46. IV FLUIDS [Concomitant]
  47. HYDROCORTISONE [Concomitant]
  48. DOXYCYCLINE [Concomitant]
  49. DEXAMETHASONE (BENZALKONIUM CHLORIDE, DEXAMETHASONE, PHENYLMERCURIC NI [Concomitant]
  50. CHLORAMPHENICOL [Concomitant]
  51. HYDROXOCOBALAMIN (HYDROXYCOBALAMIN) [Concomitant]
  52. LEVOCABASTINE (LEVOCABASTINE) [Concomitant]
  53. NYSTATIN [Concomitant]
  54. AMOXICILLIN AND CLAVULANATE POTASSIUM [Concomitant]
  55. NICOTINAMIDE, RETINOL, RIBOFLAVIN, THIAMINE HYDROCHLORIDE, ERGOCALCIFE [Concomitant]

REACTIONS (13)
  - ATELECTASIS [None]
  - BACK PAIN [None]
  - CARDIOMEGALY [None]
  - CATARACT [None]
  - CHRONIC OBSTRUCTIVE PULMONARY DISEASE [None]
  - DYSPNOEA [None]
  - GASTROENTERITIS VIRAL [None]
  - LOWER RESPIRATORY TRACT INFECTION VIRAL [None]
  - PRODUCTIVE COUGH [None]
  - RADICULAR PAIN [None]
  - RIB FRACTURE [None]
  - SUDDEN DEATH [None]
  - THERAPEUTIC AGENT TOXICITY [None]
